FAERS Safety Report 14272679 (Version 1)
Quarter: 2017Q4

REPORT INFORMATION
  Report Type: Spontaneous
  Country: US (occurrence: None)
  Receive Date: 20171212
  Receipt Date: 20171212
  Transmission Date: 20180321
  Serious: Yes (Hospitalization)
  Sender: FDA-Public Use
  Company Number: None

PATIENT
  Age: 69 Year
  Sex: Male
  Weight: 78.9 kg

DRUGS (2)
  1. CISPLATIN. [Suspect]
     Active Substance: CISPLATIN
     Dates: end: 20160629
  2. ETOPOSIDE (VP-16) [Suspect]
     Active Substance: ETOPOSIDE
     Dates: end: 20160701

REACTIONS (11)
  - Lymphopenia [None]
  - Cough [None]
  - Neutrophil count decreased [None]
  - Body temperature increased [None]
  - Infection [None]
  - White blood cell count decreased [None]
  - Tooth infection [None]
  - Tachycardia [None]
  - Respiratory failure [None]
  - Hypoxia [None]
  - Chronic obstructive pulmonary disease [None]

NARRATIVE: CASE EVENT DATE: 20160718
